FAERS Safety Report 7790787-2 (Version None)
Quarter: 2011Q3

REPORT INFORMATION
  Report Type: 
  Country: None (occurrence: None)
  Receive Date: 20110930
  Receipt Date: 20110922
  Transmission Date: 20111222
  Serious: Yes (Hospitalization)
  Sender: FDA-Public Use
  Company Number: US-ASTRAZENECA-2011SE49216

PATIENT
  Age: 51 Year
  Sex: Male

DRUGS (1)
  1. CRESTOR [Suspect]
     Route: 048

REACTIONS (9)
  - BLOOD CHOLESTEROL INCREASED [None]
  - DRUG DOSE OMISSION [None]
  - MALAISE [None]
  - DISABILITY [None]
  - CARDIOMYOPATHY [None]
  - CARDIOMEGALY [None]
  - DIABETES MELLITUS [None]
  - CONDITION AGGRAVATED [None]
  - HYPERTENSION [None]
